FAERS Safety Report 11920245 (Version 1)
Quarter: 2016Q1

REPORT INFORMATION
  Report Type: Spontaneous
  Country: US (occurrence: US)
  Receive Date: 20160115
  Receipt Date: 20160115
  Transmission Date: 20160526
  Serious: Yes (Other)
  Sender: FDA-Public Use
  Company Number: PHHY2016US003525

PATIENT
  Age: 40 Year
  Sex: Male

DRUGS (2)
  1. CARBAMAZEPINE. [Suspect]
     Active Substance: CARBAMAZEPINE
     Indication: COMPLEX PARTIAL SEIZURES
     Dosage: 200 MG, BID
     Route: 065
  2. CARBAMAZEPINE. [Suspect]
     Active Substance: CARBAMAZEPINE
     Dosage: 200 MG, Q6H
     Route: 065

REACTIONS (16)
  - Inappropriate affect [Recovered/Resolved]
  - Pressure of speech [Recovered/Resolved]
  - Agitation [Recovered/Resolved]
  - Flight of ideas [Recovered/Resolved]
  - Loose associations [Recovered/Resolved]
  - Grandiosity [Recovered/Resolved]
  - Drug ineffective [Unknown]
  - Irritability [Recovered/Resolved]
  - Delusion of grandeur [Recovered/Resolved]
  - Mania [Recovered/Resolved]
  - Accidental exposure to product [Unknown]
  - Euphoric mood [Recovered/Resolved]
  - Insomnia [Recovered/Resolved]
  - Restlessness [Recovered/Resolved]
  - Logorrhoea [Recovered/Resolved]
  - Psychomotor hyperactivity [Recovered/Resolved]
